FAERS Safety Report 18684033 (Version 6)
Quarter: 2021Q1

REPORT INFORMATION
  Report Type: Spontaneous
  Country: US (occurrence: US)
  Receive Date: 20201230
  Receipt Date: 20210209
  Transmission Date: 20210419
  Serious: Yes (Other)
  Sender: FDA-Public Use
  Company Number: US-PFIZER INC-2020513362

PATIENT
  Age: 42 Year

DRUGS (3)
  1. DEPO?ESTRADIOL [Suspect]
     Active Substance: ESTRADIOL CYPIONATE
     Dosage: UNK
  2. LIOTHYRONINE [Concomitant]
     Active Substance: LIOTHYRONINE
     Indication: IMMUNE SYSTEM DISORDER
     Dosage: 25 UG
  3. SYNTHROID [Concomitant]
     Active Substance: LEVOTHYROXINE SODIUM
     Indication: IMMUNE SYSTEM DISORDER
     Dosage: 88 UG

REACTIONS (4)
  - Feeling abnormal [Unknown]
  - Autoimmune thyroiditis [Unknown]
  - Granuloma annulare [Not Recovered/Not Resolved]
  - Malaise [Unknown]

NARRATIVE: CASE EVENT DATE: 2001
